FAERS Safety Report 24168680 (Version 2)
Quarter: 2024Q4

REPORT INFORMATION
  Report Type: Spontaneous
  Country: US (occurrence: US)
  Receive Date: 20240802
  Receipt Date: 20241022
  Transmission Date: 20250115
  Serious: Yes (Hospitalization)
  Sender: Vantive US Healthcare
  Company Number: US-VANTIVE-2024VAN018692

PATIENT
  Sex: Female
  Weight: 56 kg

DRUGS (1)
  1. EXTRANEAL [Suspect]
     Active Substance: CALCIUM CHLORIDE\ICODEXTRIN\MAGNESIUM CHLORIDE\SODIUM CHLORIDE\SODIUM LACTATE
     Dosage: LAST FILL OF 1000 ML, 7 DAYS A WEEK
     Route: 033

REACTIONS (4)
  - Hypervolaemia [Unknown]
  - Dyspnoea [Recovering/Resolving]
  - Treatment noncompliance [Unknown]
  - Therapy interrupted [Unknown]
